FAERS Safety Report 6908627-X (Version None)
Quarter: 2010Q3

REPORT INFORMATION
  Report Type: 
  Country: None (occurrence: None)
  Receive Date: 20100805
  Receipt Date: 20100727
  Transmission Date: 20110219
  Serious: Yes (Death, Other)
  Sender: FDA-Public Use
  Company Number: US-PFIZER INC-2005107341

PATIENT
  Sex: Male
  Weight: 105.7 kg

DRUGS (12)
  1. NEURONTIN [Suspect]
     Indication: BIPOLAR DISORDER
     Dosage: 400 MG, 3X/DAY
     Route: 048
     Dates: start: 20030514
  2. SEROQUEL [Suspect]
     Indication: ILL-DEFINED DISORDER
     Dosage: UNK
     Route: 048
     Dates: start: 20030517
  3. XANAX [Concomitant]
     Dosage: UNK
     Route: 048
  4. KLONOPIN [Concomitant]
     Dosage: UNK
     Route: 048
     Dates: start: 20030517
  5. PAMELOR [Concomitant]
     Dosage: UNK
     Route: 048
  6. ZOLOFT [Concomitant]
     Dosage: UNK
     Route: 048
     Dates: start: 20030519
  7. LITHOBID [Concomitant]
     Dosage: UNK
     Route: 048
     Dates: start: 20030517
  8. NAVANE [Concomitant]
     Dosage: UNK
     Route: 048
     Dates: start: 20030519
  9. COGENTIN [Concomitant]
     Dosage: UNK
     Route: 048
  10. HALDOL [Concomitant]
     Dosage: UNK
     Route: 048
  11. RISPERDAL [Concomitant]
     Dosage: UNK
  12. DEPAKOTE [Concomitant]
     Dosage: UNK

REACTIONS (3)
  - COMPLETED SUICIDE [None]
  - DRUG INEFFECTIVE [None]
  - OVERDOSE [None]
